FAERS Safety Report 20351707 (Version 1)
Quarter: 2022Q1

REPORT INFORMATION
  Report Type: Spontaneous
  Country: US (occurrence: US)
  Receive Date: 20220119
  Receipt Date: 20220119
  Transmission Date: 20220423
  Serious: Yes (Other)
  Sender: FDA-Public Use
  Company Number: US-PFIZER INC-202101411212

PATIENT
  Age: 38 Year
  Sex: Male
  Weight: 95.25 kg

DRUGS (1)
  1. DILANTIN [Suspect]
     Active Substance: PHENYTOIN
     Indication: Seizure
     Dosage: 400MG AT NIGHT
     Route: 048

REACTIONS (3)
  - Brain neoplasm [Unknown]
  - Condition aggravated [Unknown]
  - Drug ineffective [Unknown]
